FAERS Safety Report 4383323-4 (Version None)
Quarter: 2004Q2

REPORT INFORMATION
  Report Type: 
  Country: None (occurrence: None)
  Receive Date: 20040618
  Receipt Date: 20040602
  Transmission Date: 20050107
  Serious: Yes (Other)
  Sender: FDA-Public Use
  Company Number: USA040669028

PATIENT
  Age: 59 Year
  Sex: Male
  Weight: 121 kg

DRUGS (8)
  1. HUMALOG [Suspect]
     Indication: DIABETES MELLITUS
     Dates: start: 20020101
  2. HUMULIN R [Suspect]
     Indication: DIABETES MELLITUS
     Dates: start: 19930101, end: 20020101
  3. CORTICOSTEROID NOS [Concomitant]
  4. MICRO-K (POTASSIUM CHLORIDE) [Concomitant]
  5. LASIX [Concomitant]
  6. ULTRAM [Concomitant]
  7. NEURONTIN [Concomitant]
  8. ALTACE [Concomitant]

REACTIONS (11)
  - BIPOLAR DISORDER [None]
  - BLOOD CHOLESTEROL INCREASED [None]
  - CONVULSION [None]
  - MEDICATION ERROR [None]
  - OEDEMA PERIPHERAL [None]
  - PHARMACEUTICAL PRODUCT COMPLAINT [None]
  - RETINOPATHY [None]
  - SUICIDAL IDEATION [None]
  - THYROID FUNCTION TEST ABNORMAL [None]
  - TREMOR [None]
  - WEIGHT INCREASED [None]
